FAERS Safety Report 14531703 (Version 1)
Quarter: 2018Q1

REPORT INFORMATION
  Report Type: Spontaneous
  Country: ES (occurrence: ES)
  Receive Date: 20180214
  Receipt Date: 20180214
  Transmission Date: 20180509
  Serious: Yes (Other)
  Sender: FDA-Public Use
  Company Number: ES-ALEXION-A201713482

PATIENT
  Sex: Male
  Weight: 26.1 kg

DRUGS (4)
  1. KANUMA [Suspect]
     Active Substance: SEBELIPASE ALFA
     Dosage: 3 MG/KG, QW
     Route: 065
     Dates: start: 20150909
  2. KANUMA [Suspect]
     Active Substance: SEBELIPASE ALFA
     Indication: LYSOSOMAL ACID LIPASE DEFICIENCY
     Dosage: 1 MG/KG, Q2W
     Route: 042
     Dates: start: 201412
  3. KANUMA [Suspect]
     Active Substance: SEBELIPASE ALFA
     Dosage: 3 MG/KG, QW
     Route: 065
     Dates: start: 20160831
  4. KANUMA [Suspect]
     Active Substance: SEBELIPASE ALFA
     Dosage: 3 MG/KG, QW
     Route: 065
     Dates: start: 201711

REACTIONS (12)
  - High density lipoprotein increased [Unknown]
  - Transaminases abnormal [Unknown]
  - Lipids increased [Unknown]
  - Growth retardation [Unknown]
  - Blood triglycerides decreased [Unknown]
  - Hepatomegaly [Unknown]
  - Enzyme level decreased [Not Recovered/Not Resolved]
  - Blood cholesterol decreased [Unknown]
  - Weight increased [Unknown]
  - Cholelithiasis [Unknown]
  - Low density lipoprotein decreased [Unknown]
  - Body fat disorder [Not Recovered/Not Resolved]
